FAERS Safety Report 13716756 (Version 1)
Quarter: 2017Q3

REPORT INFORMATION
  Report Type: Spontaneous
  Country: GB (occurrence: None)
  Receive Date: 20170703
  Receipt Date: 20170703
  Transmission Date: 20171127
  Serious: Yes (Other)
  Sender: FDA-Public Use
  Company Number: GB2017K4530SPO

PATIENT
  Age: 62 Year
  Sex: Male
  Weight: 71 kg

DRUGS (4)
  1. SERETIDE (FLUTICASONE PROPONATE MICRONISED, SALMETEROL XINAFOATE MICRONISED); UNKNOWN [Concomitant]
  2. VENTOLIN (SALBUTAMOL, SALBUTAMOL BASE, SALBUTAMIL SULPHATE, SALBUTAMOL SULPHATE MICRONISED); UNKNOWN [Concomitant]
  3. SPIRIVA (TIOTROPIUM BROMIDE, TIOTROPIUM BROMIDE MONOHYDRATE); UNKNOWN [Concomitant]
  4. LANSOPRAZOLE GENERIC (LANSOPRAZOLE) [Suspect]
     Active Substance: LANSOPRAZOLE
     Indication: GASTROOESOPHAGEAL REFLUX DISEASE
     Route: 048
     Dates: start: 20170304, end: 20170607

REACTIONS (8)
  - Disturbance in attention [None]
  - Crying [None]
  - Headache [None]
  - Depression [None]
  - Mood swings [None]
  - Suicidal ideation [None]
  - Anger [None]
  - Confusional state [None]

NARRATIVE: CASE EVENT DATE: 20170526
